FAERS Safety Report 5467741-9 (Version None)
Quarter: 2007Q3

REPORT INFORMATION
  Report Type: 
  Country: None (occurrence: None)
  Receive Date: 20070814
  Receipt Date: 20070704
  Transmission Date: 20080115
  Serious: No
  Sender: FDA-Public Use
  Company Number: 200712295US

PATIENT
  Age: 83 Year
  Sex: Female

DRUGS (20)
  1. APIDRA [Suspect]
     Indication: TYPE 2 DIABETES MELLITUS
     Dosage: 4 U/DAY
  2. OPTICLIK GREY [Suspect]
     Indication: TYPE 2 DIABETES MELLITUS
     Dates: start: 20070301
  3. LANTUS [Suspect]
     Indication: TYPE 2 DIABETES MELLITUS
     Dosage: DURATION: A FEW YEARS
  4. AJMALINE             (CARDIA) [Concomitant]
  5. AVAPRO [Concomitant]
  6. OMEPRAZOLE [Concomitant]
  7. ROSUVASTATIN                (CRESTOR               /01588601/) [Concomitant]
  8. AMLODIPINE                           (NORVASC                  /009724 [Concomitant]
  9. FLUTICASONE PROPIONATE, SALMETEROL XINAFOATE           (ADVAIR) [Concomitant]
  10. SPIRIVA [Concomitant]
  11. SALBUTAMOL [Concomitant]
  12. ASCORBIC ACID                (VITAMIN C) [Concomitant]
  13. CALCIUM [Concomitant]
  14. POTASSIUM CHLORIDE [Concomitant]
  15. MULTI-VITAMIN [Concomitant]
  16. TOCOPHERYL ACETATE (VITAMIN E) [Concomitant]
  17. FISH OIL [Concomitant]
  18. CYANOCOBALAMIN         (VITAMIN B-12) [Concomitant]
  19. GLUCOSAMINE [Concomitant]
  20. ASPIRIN [Concomitant]

REACTIONS (2)
  - ACCIDENTAL NEEDLE STICK [None]
  - BLOOD GLUCOSE INCREASED [None]
